FAERS Safety Report 7236581-2 (Version None)
Quarter: 2011Q1

REPORT INFORMATION
  Report Type: 
  Country: None (occurrence: None)
  Receive Date: 20110120
  Receipt Date: 20110113
  Transmission Date: 20110831
  Serious: Yes (Other)
  Sender: FDA-Public Use
  Company Number: CA-PFIZER INC-2011009056

PATIENT
  Sex: Female

DRUGS (2)
  1. ADVIL COLD AND SINUS [Suspect]
     Indication: SINUS CONGESTION
     Dosage: UNK
     Route: 048
  2. ADVIL COLD AND SINUS [Suspect]
     Indication: EAR INFECTION

REACTIONS (2)
  - HEADACHE [None]
  - BLOOD PRESSURE ABNORMAL [None]
